FAERS Safety Report 5718567-X (Version None)
Quarter: 2008Q2

REPORT INFORMATION
  Report Type: 
  Country: None (occurrence: None)
  Receive Date: 20080425
  Receipt Date: 20080415
  Transmission Date: 20081010
  Serious: Yes (Other)
  Sender: FDA-Public Use
  Company Number: US-PFIZER INC-2008013603

PATIENT
  Sex: Male
  Weight: 84.82 kg

DRUGS (6)
  1. LYRICA [Suspect]
     Indication: NEUROPATHY PERIPHERAL
  2. LYRICA [Suspect]
     Indication: NERVE INJURY
  3. SULFONAMIDES [Suspect]
     Indication: INTRAOCULAR PRESSURE TEST
     Dates: start: 20080220, end: 20080220
  4. TRIAMTERENE [Concomitant]
  5. LEVOTHYROXINE SODIUM [Concomitant]
  6. VITAMIN B-12 [Concomitant]

REACTIONS (9)
  - ABDOMINAL PAIN [None]
  - BLOOD GLUCOSE INCREASED [None]
  - CATARACT OPERATION [None]
  - DRUG HYPERSENSITIVITY [None]
  - DYSSTASIA [None]
  - HYPOAESTHESIA [None]
  - INSOMNIA [None]
  - INTRAOCULAR PRESSURE TEST [None]
  - SOMNOLENCE [None]
